FAERS Safety Report 26096318 (Version 1)
Quarter: 2025Q4

REPORT INFORMATION
  Report Type: Spontaneous
  Country: EU (occurrence: EU)
  Receive Date: 20251127
  Receipt Date: 20251127
  Transmission Date: 20260118
  Serious: No
  Sender: ALKEM
  Company Number: EU-ALKEM LABORATORIES LIMITED-RO-ALKEM-2025-06299

PATIENT
  Age: 50 Year
  Sex: Male

DRUGS (3)
  1. METFORMIN HYDROCHLORIDE [Suspect]
     Active Substance: METFORMIN HYDROCHLORIDE
     Indication: Type 2 diabetes mellitus
     Dosage: 2000 MILLIGRAM, QD
     Route: 065
     Dates: start: 201312
  2. METFORMIN HYDROCHLORIDE [Suspect]
     Active Substance: METFORMIN HYDROCHLORIDE
     Dosage: UNK (LOWER DOSE)
     Route: 065
  3. ROSUVASTATIN [Suspect]
     Active Substance: ROSUVASTATIN
     Indication: Low density lipoprotein abnormal
     Dosage: 20 MILLIGRAM, QD
     Route: 065

REACTIONS (4)
  - Gastrointestinal disorder [Unknown]
  - Drug intolerance [Unknown]
  - Myalgia [Unknown]
  - Blood creatine phosphokinase increased [Unknown]
